FAERS Safety Report 8237696 (Version 3)
Quarter: 2012Q4

REPORT INFORMATION
  Report Type: 
  Country: US (occurrence: US)
  Receive Date: 20111109
  Receipt Date: 20121205
  Transmission Date: 20130627
  Serious: Yes (Death, Hospitalization, Other)
  Sender: FDA-Public Use
  Company Number: US-PFIZER INC-2011270755

PATIENT
  Age: 70 Year
  Sex: Male
  Weight: 83.9 kg

DRUGS (6)
  1. REVATIO [Suspect]
     Indication: PULMONARY ARTERIAL HYPERTENSION
     Dosage: 20 mg, 3x/day
     Route: 048
     Dates: start: 20100413, end: 20110814
  2. VIAGRA [Suspect]
     Indication: PULMONARY ARTERIAL HYPERTENSION
     Dosage: 25 mg, 3x/day (every 8 hours)
     Route: 048
     Dates: start: 20110814
  3. PREDNISONE [Concomitant]
     Indication: PULMONARY ARTERIAL HYPERTENSION
     Dosage: 10 mg, daily
     Route: 048
  4. DIGOXIN [Concomitant]
     Indication: ATRIAL FIBRILLATION WITH RAPID VENTRICULAR RESPONSE
     Dosage: 0.125 mg, daily
     Route: 048
  5. ALBUTEROL [Concomitant]
     Indication: OBSTRUCTION LUNG DISEASE
     Dosage: 2.5 mg, every 4 hrs
     Route: 048
  6. TREPROSTINOL [Concomitant]
     Indication: PULMONARY ARTERIAL HYPERTENSION
     Dosage: six puffs four times a day

REACTIONS (3)
  - Cardiac arrest [Fatal]
  - Rectal haemorrhage [Fatal]
  - Off label use [Unknown]
